FAERS Safety Report 9894563 (Version 1)
Quarter: 2014Q1

REPORT INFORMATION
  Report Type: Spontaneous
  Country: US (occurrence: US)
  Receive Date: 20140213
  Receipt Date: 20140213
  Transmission Date: 20141002
  Serious: Yes (Death)
  Sender: FDA-Public Use
  Company Number: US-OTSUKA-US-2014-10286

PATIENT
  Sex: Male

DRUGS (5)
  1. BUSULFEX [Suspect]
     Indication: STEM CELL TRANSPLANT
     Dosage: 16 MG/KG, UNK
  2. THIOTEPA [Suspect]
     Indication: STEM CELL TRANSPLANT
     Dosage: 10 MG/KG, UNK
  3. CYCLOPHOSPHAMIDE [Suspect]
     Indication: STEM CELL TRANSPLANT
     Dosage: 50 MG/KG, UNK
  4. ATG [Suspect]
     Indication: STEM CELL TRANSPLANT
     Dosage: 20 MG/KG, UNK
  5. ATG [Suspect]
     Dosage: 30 MG/KG, UNK

REACTIONS (2)
  - Cardio-respiratory arrest [Fatal]
  - Bronchopulmonary aspergillosis [Unknown]
